FAERS Safety Report 6837010-0 (Version None)
Quarter: 2010Q3

REPORT INFORMATION
  Report Type: 
  Country: None (occurrence: None)
  Receive Date: 20100713
  Receipt Date: 20070427
  Transmission Date: 20110219
  Serious: No
  Sender: FDA-Public Use
  Company Number: US-PFIZER INC-2007035294

PATIENT
  Sex: Female
  Weight: 57.727 kg

DRUGS (5)
  1. CHANTIX [Suspect]
     Indication: SMOKING CESSATION THERAPY
     Dates: start: 20070425, end: 20070426
  2. NITROGLYCERIN [Suspect]
     Indication: CHEST PAIN
  3. ADVAIR DISKUS 100/50 [Concomitant]
  4. WELLBUTRIN [Concomitant]
  5. PRILOSEC [Concomitant]

REACTIONS (6)
  - CHEST PAIN [None]
  - DIARRHOEA [None]
  - FLATULENCE [None]
  - HEADACHE [None]
  - NAUSEA [None]
  - SOMNOLENCE [None]
